FAERS Safety Report 12666794 (Version 1)
Quarter: 2016Q3

REPORT INFORMATION
  Report Type: Report from Study
  Country: US (occurrence: US)
  Receive Date: 20160819
  Receipt Date: 20160819
  Transmission Date: 20161109
  Serious: Yes (Hospitalization, Other)
  Sender: FDA-Public Use
  Company Number: US-ACCORD-043211

PATIENT
  Age: 82 Year
  Sex: Female

DRUGS (1)
  1. METHOTREXATE. [Suspect]
     Active Substance: METHOTREXATE
     Indication: ECZEMA
     Dosage: ALSO RECEIVED AT 10 MG ORALLY FOR PRURIGO NODULARIS, THAN15 MG ONCE WEEKLY INJECTION FOR DERMATITIS

REACTIONS (4)
  - Diverticulitis [Unknown]
  - Nausea [Unknown]
  - Off label use [Unknown]
  - Infection [Unknown]
